FAERS Safety Report 5453694-6 (Version None)
Quarter: 2007Q3

REPORT INFORMATION
  Report Type: 
  Country: None (occurrence: None)
  Receive Date: 20070917
  Receipt Date: 20070912
  Transmission Date: 20080115
  Serious: Yes (Hospitalization)
  Sender: FDA-Public Use
  Company Number: AU-AMGEN-US239337

PATIENT
  Sex: Female
  Weight: 65 kg

DRUGS (6)
  1. NEULASTA [Suspect]
     Indication: CHEMOTHERAPY
     Route: 058
     Dates: start: 20070301, end: 20070801
  2. TAXOTERE [Suspect]
     Route: 065
     Dates: start: 20070301, end: 20070801
  3. CYCLOPHOSPHAMIDE [Suspect]
     Route: 065
     Dates: start: 20070301, end: 20070801
  4. DOXORUBICIN HYDROCHLORIDE [Concomitant]
     Route: 065
     Dates: start: 20070301, end: 20070801
  5. NAVOBAN [Concomitant]
     Route: 065
     Dates: start: 20070301, end: 20070801
  6. DEXAMETHASONE 0.5MG TAB [Concomitant]
     Route: 065
     Dates: start: 20070301, end: 20070801

REACTIONS (1)
  - PNEUMONITIS [None]
